FAERS Safety Report 5054429-1 (Version None)
Quarter: 2006Q3

REPORT INFORMATION
  Report Type: 
  Country: None (occurrence: None)
  Receive Date: 20060713
  Receipt Date: 20060628
  Transmission Date: 20061208
  Serious: Yes (Hospitalization)
  Sender: FDA-Public Use
  Company Number: 2006-DE-03327GD

PATIENT
  Age: 53 Year
  Sex: Male

DRUGS (5)
  1. FUROSEMIDE [Suspect]
     Indication: HYPERTENSION
     Dosage: 40 MG
  2. LISINOPRIL [Suspect]
     Indication: HYPERTENSION
     Dosage: 80 MG (TWICE DAILY)
  3. CARVEDILOL [Suspect]
     Indication: HYPERTENSION
     Dosage: 6.25 MG (, TWICE DAILY)
  4. AMLODIPINE [Suspect]
     Indication: HYPERTENSION
     Dosage: 10 MG
  5. POTASSIUM SUPPLEMENTS (POTASSIUM) [Suspect]
     Indication: HYPERTENSION
     Dosage: 80 MEQ

REACTIONS (7)
  - ADRENAL MASS [None]
  - BLOOD POTASSIUM DECREASED [None]
  - CARDIAC FAILURE CONGESTIVE [None]
  - HYPERTENSIVE CRISIS [None]
  - PERNICIOUS ANAEMIA [None]
  - REFUSAL OF TREATMENT BY PATIENT [None]
  - URINE POTASSIUM INCREASED [None]
